FAERS Safety Report 4825103-9 (Version None)
Quarter: 2005Q4

REPORT INFORMATION
  Report Type: 
  Country: None (occurrence: None)
  Receive Date: 20051109
  Receipt Date: 20051031
  Transmission Date: 20060501
  Serious: Yes (Hospitalization)
  Sender: FDA-Public Use
  Company Number: 2005150098

PATIENT
  Sex: 0

DRUGS (2)
  1. LYRICA [Suspect]
     Indication: POST HERPETIC NEURALGIA
     Dosage: 150 MG (75 MG, 2 IN 1 D)
  2. METHOTREXATE [Suspect]
     Indication: RHEUMATOID ARTHRITIS

REACTIONS (2)
  - DRUG INTERACTION [None]
  - PANCYTOPENIA [None]
